FAERS Safety Report 10373758 (Version 1)
Quarter: 2014Q1

REPORT INFORMATION
  Report Type: Spontaneous
  Country: US (occurrence: None)
  Receive Date: 20140306
  Receipt Date: 20140306
  Transmission Date: 20141002
  Serious: Yes (Other)
  Sender: FDA-Public Use
  Company Number: 163-21880-13051154

PATIENT
  Age: 43 Year
  Sex: Male
  Weight: 77.11 kg

DRUGS (2)
  1. REVLIMID (LENALIDOMIDE) (10 MILLIGRAM, CAPSULES) [Suspect]
     Indication: MYELODYSPLASTIC SYNDROME
     Dosage: 1 IN 1 D
     Route: 048
     Dates: start: 20130402
  2. BLOOD TRANSFUSIONS (BLOOD AND RELATED PRODUCTS) [Concomitant]

REACTIONS (2)
  - Neutropenia [None]
  - Full blood count decreased [None]
